FAERS Safety Report 18601563 (Version 1)
Quarter: 2020Q4

REPORT INFORMATION
  Report Type: Spontaneous
  Country: US (occurrence: US)
  Receive Date: 20201210
  Receipt Date: 20201210
  Transmission Date: 20210114
  Serious: No
  Sender: FDA-Public Use
  Company Number: US-TAKEDA-2020TUS055836

PATIENT
  Age: 77 Year
  Sex: Male
  Weight: 210 kg

DRUGS (52)
  1. SODIUM BICARBONATE. [Concomitant]
     Active Substance: SODIUM BICARBONATE
  2. DILTIAZEM. [Concomitant]
     Active Substance: DILTIAZEM
  3. COENZYME Q10 [Concomitant]
     Active Substance: DIETARY SUPPLEMENT\UBIDECARENONE
  4. RASPBERRY KETONE [Concomitant]
     Active Substance: RASPBERRY KETONE
  5. HAWTHORN [CRATAEGUS LAEVIGATA] [Concomitant]
  6. SODIUM NITRATE. [Concomitant]
     Active Substance: SODIUM NITRATE
  7. ACETAMINOPHEN. [Concomitant]
     Active Substance: ACETAMINOPHEN
  8. DIPHENHYDRAMINE. [Concomitant]
     Active Substance: DIPHENHYDRAMINE
  9. DHA [Concomitant]
     Active Substance: DIETARY SUPPLEMENT
  10. L-CARNITINE [LEVOCARNITINE] [Concomitant]
     Active Substance: LEVOCARNITINE
  11. RIBOFLAVIN [Concomitant]
     Active Substance: RIBOFLAVIN
  12. METFORMIN [Concomitant]
     Active Substance: METFORMIN HYDROCHLORIDE
  13. OLIVE LEAVES EXTRACT [Concomitant]
  14. AMOXICILLIN. [Concomitant]
     Active Substance: AMOXICILLIN
  15. ALPHA LIPOIC ACID [Concomitant]
     Active Substance: .ALPHA.-LIPOIC ACID
  16. BLUEBERRY [VACCINIUM MYRTILLUS] [Concomitant]
  17. VITAMIN B6 [Concomitant]
     Active Substance: PYRIDOXINE HYDROCHLORIDE
  18. CUVITRU [Suspect]
     Active Substance: HUMAN IMMUNOGLOBULIN G
     Indication: COMBINED IMMUNODEFICIENCY
     Dosage: 30 GRAM, Q2WEEKS
     Route: 058
     Dates: start: 20191024
  19. ARMOUR THYROID [Concomitant]
     Active Substance: THYROID, PORCINE
  20. PAPAYA ENZYME [PAPAIN] [Concomitant]
  21. CALCIUM [Concomitant]
     Active Substance: CALCIUM
  22. NATTOKINASE [Concomitant]
     Active Substance: NATTOKINASE
  23. FLOMAX [Concomitant]
     Active Substance: TAMSULOSIN HYDROCHLORIDE
  24. DEPO-TESTOSTERONE [Concomitant]
     Active Substance: TESTOSTERONE CYPIONATE
  25. FINASTERIDE. [Concomitant]
     Active Substance: FINASTERIDE
  26. ZINC. [Concomitant]
     Active Substance: ZINC
  27. CINNAMON [CINNAMOMUM VERUM] [Concomitant]
  28. TURMERIC [CURCUMA LONGA RHIZOME] [Concomitant]
     Active Substance: HERBALS\TURMERIC
  29. COLLAGEN [Concomitant]
     Active Substance: COLLAGEN
  30. KRILL OIL [Concomitant]
     Active Substance: DIETARY SUPPLEMENT\KRILL OIL
  31. ECHINACEA ANGUSTIFOLIA [Concomitant]
     Active Substance: ECHINACEA ANGUSTIFOLIA
  32. METOPROLOL. [Concomitant]
     Active Substance: METOPROLOL
  33. LOSARTAN. [Concomitant]
     Active Substance: LOSARTAN
  34. EPINEPHRINE. [Concomitant]
     Active Substance: EPINEPHRINE
  35. LMX4 [Concomitant]
     Active Substance: LIDOCAINE
  36. VITAMIN C [Concomitant]
     Active Substance: ASCORBIC ACID
  37. COPPER [Concomitant]
     Active Substance: COPPER
  38. MAGNESIUM [Concomitant]
     Active Substance: MAGNESIUM
  39. CIALIS [Concomitant]
     Active Substance: TADALAFIL
  40. VITAMIN B12 [VITAMIN B12 NOS] [Concomitant]
     Active Substance: CYANOCOBALAMIN
  41. CURCUMIN [Concomitant]
     Active Substance: CURCUMIN
  42. VITAMIN A [RETINOL] [Concomitant]
     Active Substance: RETINOL
  43. RESVERATROL [Concomitant]
     Active Substance: DIETARY SUPPLEMENT\RESVERATROL
  44. GINGER [ZINGIBER OFFICINALE RHIZOME] [Concomitant]
     Active Substance: GINGER
  45. CHROMIUM [Concomitant]
     Active Substance: CHROMIC CHLORIDE\CHROMIUM
  46. VITAMIN K2 [MENAQUINONE] [Concomitant]
     Active Substance: MENAQUINONE 6
  47. PHOSPHORUS [Concomitant]
     Active Substance: PHOSPHORUS
  48. AFRIN [OXYMETAZOLINE] [Concomitant]
  49. SELENIUM [Concomitant]
     Active Substance: SELENIUM
  50. GRAPE SEED EXTRACT [VITIS VINIFERA SEED] [Concomitant]
  51. VITAMIN D3 [Concomitant]
     Active Substance: CHOLECALCIFEROL
  52. WARFARIN [Concomitant]
     Active Substance: WARFARIN

REACTIONS (1)
  - Prostatitis [Unknown]

NARRATIVE: CASE EVENT DATE: 20201118
